FAERS Safety Report 11464401 (Version 1)
Quarter: 2015Q3

REPORT INFORMATION
  Report Type: Spontaneous
  Country: US (occurrence: US)
  Receive Date: 20150831
  Receipt Date: 20150831
  Transmission Date: 20151125
  Serious: No
  Sender: FDA-Public Use
  Company Number: US-ELI_LILLY_AND_COMPANY-US201107000344

PATIENT
  Age: 69 Year
  Sex: Female

DRUGS (3)
  1. CYMBALTA [Suspect]
     Active Substance: DULOXETINE HYDROCHLORIDE
     Dosage: 60 MG, UNK
  2. CYMBALTA [Suspect]
     Active Substance: DULOXETINE HYDROCHLORIDE
     Dosage: UNK, QOD
  3. CYMBALTA [Suspect]
     Active Substance: DULOXETINE HYDROCHLORIDE
     Indication: MYALGIA
     Dosage: 30 MG, UNK
     Dates: start: 201105

REACTIONS (8)
  - Headache [Unknown]
  - Vision blurred [Unknown]
  - Dizziness [Unknown]
  - Muscle tightness [Not Recovered/Not Resolved]
  - Abdominal pain upper [Unknown]
  - Swelling [Unknown]
  - Constipation [Unknown]
  - Drug withdrawal syndrome [Not Recovered/Not Resolved]

NARRATIVE: CASE EVENT DATE: 20110628
